FAERS Safety Report 8399451-2 (Version None)
Quarter: 2012Q2

REPORT INFORMATION
  Report Type: 
  Country: None (occurrence: None)
  Receive Date: 20120531
  Receipt Date: 20120522
  Transmission Date: 20120825
  Serious: Yes (Hospitalization)
  Sender: FDA-Public Use
  Company Number: US-ASTRAZENECA-2011SE23631

PATIENT
  Age: 58 Year
  Sex: Female

DRUGS (2)
  1. SYMBICORT [Suspect]
     Dosage: UNKNOWN
     Route: 055
  2. NEXIUM [Suspect]
     Route: 048

REACTIONS (7)
  - BRONCHITIS [None]
  - FALL [None]
  - PNEUMONIA PRIMARY ATYPICAL [None]
  - APHONIA [None]
  - INTENTIONAL DRUG MISUSE [None]
  - MIGRAINE [None]
  - CONCUSSION [None]
